FAERS Safety Report 5121737-5 (Version None)
Quarter: 2006Q4

REPORT INFORMATION
  Report Type: 
  Country: None (occurrence: None)
  Receive Date: 20061006
  Receipt Date: 20060901
  Transmission Date: 20070319
  Serious: Yes (Death, Hospitalization)
  Sender: FDA-Public Use
  Company Number: JP-AVENTIS-200612715JP

PATIENT
  Age: 79 Year
  Sex: Male
  Weight: 55 kg

DRUGS (7)
  1. AMARYL [Suspect]
     Indication: DIABETES MELLITUS
     Route: 048
     Dates: end: 20050824
  2. MECOBALAMINE [Concomitant]
     Indication: DIABETES MELLITUS
     Route: 048
     Dates: end: 20050824
  3. BASEN [Concomitant]
     Indication: DIABETES MELLITUS
     Route: 048
     Dates: end: 20050824
  4. VASOLAN [Concomitant]
     Indication: DIABETES MELLITUS
     Route: 048
     Dates: end: 20050824
  5. BAFHAMERITIN M [Concomitant]
     Indication: DIABETES MELLITUS
     Route: 048
     Dates: end: 20050824
  6. HERBESSER R [Concomitant]
     Indication: DIABETES MELLITUS
     Dosage: DOSE: 1 TABLET
     Route: 048
     Dates: end: 20050824
  7. FAMOSTAGINE [Concomitant]
     Indication: DIABETES MELLITUS
     Route: 048
     Dates: end: 20050824

REACTIONS (2)
  - HYPOGLYCAEMIC COMA [None]
  - MULTI-ORGAN FAILURE [None]
